FAERS Safety Report 5474453-4 (Version None)
Quarter: 2007Q4

REPORT INFORMATION
  Report Type: 
  Country: None (occurrence: None)
  Receive Date: 20071002
  Receipt Date: 20070919
  Transmission Date: 20080405
  Serious: Yes (Hospitalization)
  Sender: FDA-Public Use
  Company Number: JP-AVENTIS-200718897GDDC

PATIENT
  Age: 68 Year
  Sex: Male

DRUGS (1)
  1. SALMOTONIN [Suspect]
     Route: 030
     Dates: start: 19980706, end: 19980706

REACTIONS (1)
  - ASTHMA [None]
